FAERS Safety Report 8115704-7 (Version None)
Quarter: 2012Q1

REPORT INFORMATION
  Report Type: 
  Country: None (occurrence: None)
  Receive Date: 20120201
  Receipt Date: 20120118
  Transmission Date: 20120608
  Serious: Yes (Hospitalization)
  Sender: FDA-Public Use
  Company Number: FK201200182

PATIENT
  Age: 72 Year
  Sex: Female
  Weight: 56 kg

DRUGS (2)
  1. FLUOROURACIL [Suspect]
     Indication: COLON CANCER
     Dosage: 32.3 MG/M2, INTRAVENOUS (NOT OTHERWISE SPECIFIED)
     Route: 042
     Dates: start: 20101012, end: 20110122
  2. OXALIPLATIN [Suspect]
     Indication: COLON CANCER
     Dosage: 58 MG/M2, INTRAVENOUS (NOT SPECIFIED)
     Route: 042

REACTIONS (2)
  - MOOD DISORDER DUE TO A GENERAL MEDICAL CONDITION [None]
  - ACUTE POLYNEUROPATHY [None]
